FAERS Safety Report 22135585 (Version 1)
Quarter: 2023Q1

REPORT INFORMATION
  Report Type: Spontaneous
  Country: ES (occurrence: ES)
  Receive Date: 20230324
  Receipt Date: 20230324
  Transmission Date: 20230418
  Serious: Yes (Hospitalization)
  Sender: FDA-Public Use
  Company Number: None

PATIENT
  Age: 80 Year
  Sex: Female

DRUGS (3)
  1. MOXIFLOXACIN [Interacting]
     Active Substance: MOXIFLOXACIN
     Indication: Respiratory tract infection
     Dosage: 400 MG, QD (EVERY 24 HOURS)
     Route: 048
     Dates: start: 20170819, end: 20170827
  2. ENALAPRIL [Interacting]
     Active Substance: ENALAPRIL
     Indication: Hypertension
     Dosage: 10 MG, QD (EVERY 24 HOURS)
     Route: 048
     Dates: start: 20150213
  3. ACETAMINOPHEN [Concomitant]
     Active Substance: ACETAMINOPHEN
     Indication: Arthralgia
     Dosage: 650 MG, Q8H (HOURS IF NECESSARY FOR PAIN)
     Route: 048
     Dates: start: 20140902

REACTIONS (1)
  - Pancreatitis [Recovered/Resolved]

NARRATIVE: CASE EVENT DATE: 20170827
